FAERS Safety Report 6009888-4 (Version None)
Quarter: 2008Q4

REPORT INFORMATION
  Report Type: 
  Country: None (occurrence: None)
  Receive Date: 20081217
  Receipt Date: 20081210
  Transmission Date: 20090506
  Serious: Yes (Other)
  Sender: FDA-Public Use
  Company Number: DE-JNJCH-2008056054

PATIENT
  Age: 51 Year
  Sex: Female
  Weight: 98 kg

DRUGS (4)
  1. REGAINE 2% [Suspect]
     Indication: ALOPECIA
     Dosage: TEXT:1 ML BID
     Route: 061
     Dates: start: 20080501, end: 20080915
  2. CAPTOPRIL [Concomitant]
     Indication: HYPERTENSION
     Dosage: TEXT:UNSPECIFIED
     Route: 048
  3. BISOPROLOL FUMARATE [Concomitant]
     Indication: HYPERTENSION
     Dosage: TEXT:UNSPECIFIED
     Route: 048
  4. HYDROCHLOROTHIAZIDE [Concomitant]
     Indication: HYPERTENSION
     Dosage: TEXT:25 MG
     Route: 048

REACTIONS (1)
  - ANGINA PECTORIS [None]
